FAERS Safety Report 6150057-5 (Version None)
Quarter: 2009Q2

REPORT INFORMATION
  Report Type: 
  Country: None (occurrence: None)
  Receive Date: 20090409
  Receipt Date: 20090403
  Transmission Date: 20091009
  Serious: Yes (Hospitalization, Other)
  Sender: FDA-Public Use
  Company Number: IL-ROXANE LABORATORIES, INC.-2009-RO-00335RO

PATIENT
  Age: 65 Year
  Sex: Female

DRUGS (12)
  1. MORPHINE [Suspect]
     Indication: PAIN
     Dosage: 200MG
     Route: 030
  2. MEPERIDINE HCL [Suspect]
     Indication: PAIN
     Route: 030
  3. FENTANYL [Suspect]
     Indication: PAIN
  4. FENTANYL [Suspect]
  5. FENTANYL [Suspect]
  6. NSAIDS [Suspect]
     Indication: PAIN
  7. COX-2 INHIBITORS [Suspect]
     Indication: PAIN
  8. BUPIVACAINE [Suspect]
     Indication: PAIN
     Route: 008
  9. KETAMINE HCL [Concomitant]
     Indication: PAIN
     Dosage: 500MG
  10. PHENOL [Concomitant]
     Indication: PAIN
     Route: 037
  11. OXYCODONE HCL [Concomitant]
     Indication: PAIN
     Dosage: 20MG
  12. OXYCODONE HCL [Concomitant]
     Dosage: 4MG

REACTIONS (6)
  - DRUG DEPENDENCE [None]
  - DRUG INEFFECTIVE [None]
  - DRUG TOLERANCE [None]
  - PNEUMONIA [None]
  - SEPSIS [None]
  - SOMNOLENCE [None]
